FAERS Safety Report 26197390 (Version 1)
Quarter: 2025Q4

REPORT INFORMATION
  Report Type: Report from Study
  Country: US (occurrence: US)
  Receive Date: 20251224
  Receipt Date: 20251224
  Transmission Date: 20260117
  Serious: Yes (Other)
  Sender: ABBVIE
  Company Number: US-ABBVIE-5368206

PATIENT
  Age: 27 Year
  Sex: Female

DRUGS (5)
  1. SKYRIZI [Suspect]
     Active Substance: RISANKIZUMAB-RZAA
     Indication: Crohn^s disease
     Dosage: FORM STRENGTH: 360 MG / 2.4 ML?DOSE: 360 MG / 2.4 ML?WEEK 12?SOLUTION FOR INJECTION IN PRE-FILLED...
     Route: 058
     Dates: start: 20230607, end: 20230607
  2. SKYRIZI [Suspect]
     Active Substance: RISANKIZUMAB-RZAA
     Dosage: FORM STRENGTH: 360 MG / 2.4 ML. SOLUTION FOR INJECTION IN PRE-FILLED INJECTOR
     Route: 058
     Dates: start: 20230314
  3. SKYRIZI [Suspect]
     Active Substance: RISANKIZUMAB-RZAA
     Indication: Crohn^s disease
     Dosage: FORM STRENGTH: 600 MG, WEEK 0?SOLUTION FOR INJECTION
     Route: 042
     Dates: start: 20230314, end: 20230314
  4. SKYRIZI [Suspect]
     Active Substance: RISANKIZUMAB-RZAA
     Indication: Crohn^s disease
     Dosage: FORM STRENGTH: 600 MG, WEEK 8?SOLUTION FOR INJECTION
     Route: 042
     Dates: start: 20230510, end: 20230510
  5. SKYRIZI [Suspect]
     Active Substance: RISANKIZUMAB-RZAA
     Indication: Crohn^s disease
     Dosage: FORM STRENGTH: 600 MG, WEEK 4?SOLUTION FOR INJECTION
     Route: 042
     Dates: start: 202304, end: 202304

REACTIONS (11)
  - Colitis [Unknown]
  - Abdominal pain [Not Recovered/Not Resolved]
  - General physical health deterioration [Not Recovered/Not Resolved]
  - Abscess [Unknown]
  - Infection [Unknown]
  - Nausea [Unknown]
  - Drug ineffective [Unknown]
  - Vomiting [Not Recovered/Not Resolved]
  - Abdominal distension [Not Recovered/Not Resolved]
  - Abscess [Unknown]
  - Colon operation [Unknown]

NARRATIVE: CASE EVENT DATE: 20230101
